FAERS Safety Report 6091065-2 (Version None)
Quarter: 2009Q1

REPORT INFORMATION
  Report Type: 
  Country: None (occurrence: None)
  Receive Date: 20090225
  Receipt Date: 20090213
  Transmission Date: 20090719
  Serious: Yes (Hospitalization)
  Sender: FDA-Public Use
  Company Number: US-SOLVAY-00209000861

PATIENT
  Sex: Female

DRUGS (3)
  1. SYNTHROID [Concomitant]
     Indication: DRUG USE FOR UNKNOWN INDICATION
     Dosage: DAILY DOSE:  UNKNOWN, FREQUENCY: ONCE A DAY
     Route: 048
  2. PROMETRIUM [Suspect]
     Indication: PROGESTERONE DECREASED
     Dosage: DAILY DOSE: 200 MILLIGRAM(S)
     Route: 048
     Dates: start: 20090206, end: 20090208
  3. VITAMIN TAB [Concomitant]
     Indication: PREGNANCY
     Dosage: DAILY DOSE: 1 DOSAGE FORM
     Route: 048

REACTIONS (6)
  - BEDRIDDEN [None]
  - CHEST PAIN [None]
  - DEHYDRATION [None]
  - DRUG EXPOSURE DURING PREGNANCY [None]
  - NAUSEA [None]
  - VOMITING [None]
